FAERS Safety Report 7086120-4 (Version None)
Quarter: 2010Q4

REPORT INFORMATION
  Report Type: 
  Country: None (occurrence: None)
  Receive Date: 20101105
  Receipt Date: 20101025
  Transmission Date: 20110411
  Serious: Yes (Hospitalization)
  Sender: FDA-Public Use
  Company Number: B0681001A

PATIENT
  Sex: Female

DRUGS (6)
  1. EPIVIR [Suspect]
     Indication: HIV INFECTION
     Dosage: 1UNIT SINGLE DOSE
     Route: 048
     Dates: start: 20100625, end: 20100625
  2. VIDEX [Suspect]
     Indication: HIV INFECTION
     Dosage: 1UNIT SINGLE DOSE
     Route: 048
     Dates: start: 20100625, end: 20100625
  3. ISENTRESS [Suspect]
     Indication: HIV INFECTION
     Dosage: 1TAB SINGLE DOSE
     Route: 048
     Dates: start: 20100625, end: 20100625
  4. PIASCLEDINE [Concomitant]
     Dosage: 1TAB PER DAY
  5. TANAKAN [Concomitant]
     Dosage: 2TAB PER DAY
     Route: 048
  6. HOMEOPATHY [Concomitant]

REACTIONS (1)
  - GENERALISED ERYTHEMA [None]
